FAERS Safety Report 5984218-2 (Version None)
Quarter: 2008Q4

REPORT INFORMATION
  Report Type: 
  Country: None (occurrence: None)
  Receive Date: 20081208
  Receipt Date: 20071220
  Transmission Date: 20090506
  Serious: No
  Sender: FDA-Public Use
  Company Number: US-AMGEN-KDL257703

PATIENT
  Sex: Female

DRUGS (3)
  1. ENBREL [Suspect]
     Indication: JUVENILE ARTHRITIS
     Route: 058
     Dates: start: 20071004
  2. METHOTREXATE [Concomitant]
     Dates: start: 20050101
  3. PLAQUENIL [Concomitant]
     Route: 048
     Dates: start: 20040101

REACTIONS (1)
  - INJECTION SITE PAIN [None]
